FAERS Safety Report 7529581-6 (Version None)
Quarter: 2011Q2

REPORT INFORMATION
  Report Type: 
  Country: None (occurrence: None)
  Receive Date: 20110607
  Receipt Date: 20050512
  Transmission Date: 20111010
  Serious: Yes (Death)
  Sender: FDA-Public Use
  Company Number: PHFR2005GB01333

PATIENT
  Sex: Male

DRUGS (1)
  1. CLOZARIL [Suspect]
     Indication: SCHIZOPHRENIA
     Dosage: UNK
     Route: 048
     Dates: start: 20040213

REACTIONS (9)
  - ADHESION [None]
  - PULMONARY OEDEMA [None]
  - HEPATIC CONGESTION [None]
  - LIVER FUNCTION TEST ABNORMAL [None]
  - EMPYEMA [None]
  - PULMONARY CONGESTION [None]
  - HEPATIC STEATOSIS [None]
  - LUNG CONSOLIDATION [None]
  - PNEUMONIA [None]
